FAERS Safety Report 5015717-8 (Version None)
Quarter: 2006Q2

REPORT INFORMATION
  Report Type: 
  Country: None (occurrence: None)
  Receive Date: 20060601
  Receipt Date: 20060525
  Transmission Date: 20061013
  Serious: Yes (Hospitalization)
  Sender: FDA-Public Use
  Company Number: US-BRISTOL-MYERS SQUIBB COMPANY-13391511

PATIENT
  Sex: Female

DRUGS (1)
  1. GLUCOPHAGE [Suspect]

REACTIONS (2)
  - MYOCARDIAL INFARCTION [None]
  - RENAL FAILURE [None]
